FAERS Safety Report 4712648-5 (Version None)
Quarter: 2005Q3

REPORT INFORMATION
  Report Type: 
  Country: None (occurrence: None)
  Receive Date: 20050711
  Receipt Date: 20050710
  Transmission Date: 20060218
  Serious: Yes (Hospitalization, Other)
  Sender: FDA-Public Use
  Company Number: KII-2005-0017303

PATIENT
  Age: 56 Year
  Sex: Male

DRUGS (3)
  1. OXYCONTIN [Suspect]
     Indication: CANCER PAIN
     Dosage: ORAL
     Route: 048
  2. BENZODIAZEPINE DERIATIVES (BENZODIAZEPINE DERIVATIVES) [Suspect]
     Dosage: ORAL
     Route: 048
  3. ACTAMINOPHEN W/OXYCODONE (PARACETAMOL, OXYCODONE HYDROCHLORIDE) [Suspect]
     Indication: DRUG USE FOR UNKNOWN INDICATION
     Dosage: ORAL
     Route: 048

REACTIONS (8)
  - BLOOD GLUCOSE DECREASED [None]
  - BLOOD PRESSURE INCREASED [None]
  - HEART RATE INCREASED [None]
  - INCOHERENT [None]
  - LETHARGY [None]
  - POST PROCEDURAL DISCOMFORT [None]
  - TRANSIENT ISCHAEMIC ATTACK [None]
  - UNRESPONSIVE TO VERBAL STIMULI [None]
